FAERS Safety Report 8839309 (Version 1)
Quarter: 2012Q4

REPORT INFORMATION
  Report Type: 
  Country: US (occurrence: US)
  Receive Date: 20121015
  Receipt Date: 20121015
  Transmission Date: 20130627
  Serious: No
  Sender: FDA-Public Use
  Company Number: US-GLAXOSMITHKLINE-A0989900A

PATIENT
  Sex: Female

DRUGS (1)
  1. BENZOYL PEROXIDE + CLINDAMYCIN PHOSPHATE [Suspect]
     Indication: PRODUCT USED FOR UNKNOWN INDICATION
     Route: 061

REACTIONS (5)
  - Adverse drug reaction [Unknown]
  - Dry skin [Unknown]
  - Erythema [Unknown]
  - Rash [Unknown]
  - Product quality issue [Unknown]
